FAERS Safety Report 4501438-4 (Version None)
Quarter: 2004Q4

REPORT INFORMATION
  Report Type: 
  Country: None (occurrence: None)
  Receive Date: 20041110
  Receipt Date: 20041103
  Transmission Date: 20050328
  Serious: Yes (Hospitalization)
  Sender: FDA-Public Use
  Company Number: 2004UW21229

PATIENT
  Age: 75 Year
  Sex: Male
  Weight: 83.9154 kg

DRUGS (4)
  1. IRESSA [Suspect]
     Indication: LUNG NEOPLASM MALIGNANT
     Dosage: 250 MG DAILY PO
     Route: 048
     Dates: start: 20041009, end: 20041010
  2. MULTI-VITAMIN [Concomitant]
  3. B-12 [Concomitant]
  4. TYLENOL (CAPLET) [Concomitant]

REACTIONS (19)
  - AGGRESSION [None]
  - AMYLOIDOSIS [None]
  - ANGIOPATHY [None]
  - BLOOD PRESSURE INCREASED [None]
  - BRAIN CONTUSION [None]
  - BRAIN OEDEMA [None]
  - CEREBRAL ATROPHY [None]
  - CEREBRAL DISORDER [None]
  - CEREBRAL HAEMORRHAGE [None]
  - CEREBRAL INFARCTION [None]
  - CONFUSIONAL STATE [None]
  - CONVULSION [None]
  - GRUNTING [None]
  - INTRAVENTRICULAR HAEMORRHAGE [None]
  - OSTEOARTHRITIS [None]
  - SCREAMING [None]
  - SPEECH DISORDER [None]
  - SUBDURAL HAEMATOMA [None]
  - VOMITING [None]
